FAERS Safety Report 8544206-9 (Version None)
Quarter: 2012Q3

REPORT INFORMATION
  Report Type: 
  Country: None (occurrence: None)
  Receive Date: 20120727
  Receipt Date: 20120723
  Transmission Date: 20120928
  Serious: Yes (Hospitalization)
  Sender: FDA-Public Use
  Company Number: PHHY2012DE044473

PATIENT
  Sex: Male
  Weight: 52 kg

DRUGS (6)
  1. TIZANIDINE HYDROCHLORIDE [Concomitant]
     Indication: MUSCLE SPASTICITY
     Dosage: 2 DF, QD
     Route: 048
     Dates: start: 20040501
  2. CALCIUM D3 [Concomitant]
     Indication: CALCIUM DEFICIENCY
     Dosage: 1 DF, QD
     Route: 048
  3. PHYSIOTHERAPY [Concomitant]
     Indication: MOVEMENT DISORDER
     Dosage: UNK UKN, QW
     Dates: start: 19780601
  4. GILENYA [Suspect]
     Dosage: 0.5 MG, QD
     Route: 048
     Dates: start: 20120327
  5. BOTOX [Concomitant]
     Indication: MUSCLE SPASTICITY
     Dates: start: 20120419
  6. GILENYA [Suspect]
     Indication: MULTIPLE SCLEROSIS
     Dosage: 0.5 MG, QD
     Route: 048
     Dates: start: 20111025, end: 20120323

REACTIONS (3)
  - HYPERTONIC BLADDER [None]
  - GASTROENTERITIS [None]
  - CALCULUS BLADDER [None]
